FAERS Safety Report 23026257 (Version 1)
Quarter: 2023Q4

REPORT INFORMATION
  Report Type: Spontaneous
  Country: US (occurrence: US)
  Receive Date: 20231004
  Receipt Date: 20231004
  Transmission Date: 20240110
  Serious: No
  Sender: FDA-Public Use
  Company Number: US-ABBVIE-5430915

PATIENT
  Age: 34 Year
  Sex: Female
  Weight: 86.182 kg

DRUGS (1)
  1. HUMIRA [Suspect]
     Active Substance: ADALIMUMAB
     Indication: Hidradenitis
     Dosage: 80 MG STRENGTH
     Route: 058
     Dates: start: 2022

REACTIONS (3)
  - Injection site pain [Recovered/Resolved]
  - Injection site discharge [Unknown]
  - Device issue [Unknown]

NARRATIVE: CASE EVENT DATE: 20230927
